FAERS Safety Report 20654501 (Version 1)
Quarter: 2022Q1

REPORT INFORMATION
  Report Type: Spontaneous
  Country: US (occurrence: US)
  Receive Date: 20220330
  Receipt Date: 20220330
  Transmission Date: 20220423
  Serious: Yes (Other)
  Sender: FDA-Public Use
  Company Number: US-Sprout Pharmaceuticals, Inc.-2022SP000088

PATIENT
  Age: 32 Year
  Sex: Female

DRUGS (2)
  1. ADDYI [Suspect]
     Active Substance: FLIBANSERIN
     Indication: Product used for unknown indication
     Route: 048
     Dates: start: 20220316
  2. Medroxypr ac [Concomitant]
     Indication: Product used for unknown indication
     Route: 065

REACTIONS (6)
  - Dysphagia [Unknown]
  - Tremor [Unknown]
  - Fatigue [Unknown]
  - Somnolence [Unknown]
  - Loss of consciousness [Unknown]
  - Dizziness [Unknown]

NARRATIVE: CASE EVENT DATE: 20220301
